FAERS Safety Report 25397674 (Version 1)
Quarter: 2025Q2

REPORT INFORMATION
  Report Type: Report from Study
  Country: IN (occurrence: IN)
  Receive Date: 20250604
  Receipt Date: 20250604
  Transmission Date: 20250717
  Serious: Yes (Death, Other)
  Sender: PFIZER
  Company Number: IN-TAKEDA-2025TUS051150

PATIENT
  Age: 28 Year
  Sex: Male

DRUGS (2)
  1. ADCETRIS [Suspect]
     Active Substance: BRENTUXIMAB VEDOTIN
     Indication: Peripheral T-cell lymphoma unspecified
     Route: 042
     Dates: start: 20240606
  2. ADCETRIS [Suspect]
     Active Substance: BRENTUXIMAB VEDOTIN
     Indication: Anaplastic large cell lymphoma T- and null-cell types

REACTIONS (1)
  - Death [Fatal]
